FAERS Safety Report 13728557 (Version 2)
Quarter: 2018Q1

REPORT INFORMATION
  Report Type: Report from Study
  Country: None (occurrence: BR)
  Receive Date: 20170707
  Receipt Date: 20180203
  Transmission Date: 20180508
  Serious: Yes (Other)
  Sender: FDA-Public Use
  Company Number: BR-ABBVIE-17K-020-2030693-00

PATIENT
  Sex: Female

DRUGS (3)
  1. HUMIRA [Suspect]
     Active Substance: ADALIMUMAB
     Route: 058
     Dates: start: 2017
  2. TRAMAL [Suspect]
     Active Substance: TRAMADOL
     Indication: PRODUCT USED FOR UNKNOWN INDICATION
     Route: 065
  3. HUMIRA [Suspect]
     Active Substance: ADALIMUMAB
     Indication: ANKYLOSING SPONDYLITIS
     Route: 058
     Dates: start: 20120101, end: 20170409

REACTIONS (8)
  - Ligament rupture [Unknown]
  - Rheumatic disorder [Unknown]
  - Tendon rupture [Unknown]
  - Immunodeficiency [Unknown]
  - Osteoarthritis [Unknown]
  - Atrophy [Unknown]
  - Pruritus [Unknown]
  - Gastrointestinal infection [Unknown]
